FAERS Safety Report 4578453-8 (Version None)
Quarter: 2005Q1

REPORT INFORMATION
  Report Type: 
  Country: None (occurrence: None)
  Receive Date: 20050211
  Receipt Date: 20050110
  Transmission Date: 20050727
  Serious: Yes (Hospitalization, Other)
  Sender: FDA-Public Use
  Company Number: SK-ABBOTT-05P-260-0286833-00

PATIENT
  Age: 40 Year
  Sex: Male

DRUGS (17)
  1. KLACID [Suspect]
     Indication: NEPHROLITHIASIS
     Route: 048
     Dates: start: 20041005, end: 20041016
  2. KLACID [Suspect]
     Indication: CALCULUS URINARY
  3. METIPRANOLOL [Concomitant]
     Indication: ATRIAL FIBRILLATION
     Route: 048
     Dates: start: 20040901
  4. METIPRANOLOL [Concomitant]
     Indication: ATRIAL FLUTTER
  5. ACETYLSALICYLIC ACID [Concomitant]
     Indication: ATRIAL FIBRILLATION
     Route: 048
     Dates: start: 20040901
  6. ACETYLSALICYLIC ACID [Concomitant]
     Indication: ATRIAL FLUTTER
  7. CALCIUM GLUCONATE [Concomitant]
     Indication: DRUG USE FOR UNKNOWN INDICATION
     Route: 042
  8. PROMETHAZINE HCL [Concomitant]
     Indication: DRUG USE FOR UNKNOWN INDICATION
     Route: 050
  9. METOPROLOL TARTRATE [Concomitant]
     Indication: DRUG USE FOR UNKNOWN INDICATION
  10. PASTA ZINCI OXIDATI [Concomitant]
     Indication: DRUG USE FOR UNKNOWN INDICATION
  11. SOLUTIO JARISCH [Concomitant]
     Indication: DRUG USE FOR UNKNOWN INDICATION
  12. CARBIMAZOLE [Concomitant]
     Indication: DRUG USE FOR UNKNOWN INDICATION
  13. METIPRANOLOL [Concomitant]
     Indication: DRUG USE FOR UNKNOWN INDICATION
  14. INDOMETHACIN [Concomitant]
     Indication: DRUG USE FOR UNKNOWN INDICATION
  15. DEXAMED [Concomitant]
     Indication: DRUG USE FOR UNKNOWN INDICATION
     Dosage: IN SALINE SOLUTION
     Route: 042
  16. HCT IN SALINE [Concomitant]
     Indication: DRUG USE FOR UNKNOWN INDICATION
  17. REALIMINTATION [Concomitant]
     Indication: DRUG USE FOR UNKNOWN INDICATION

REACTIONS (4)
  - ANGIONEUROTIC OEDEMA [None]
  - EXANTHEM [None]
  - PYREXIA [None]
  - URTICARIA GENERALISED [None]
